FAERS Safety Report 6196542-1 (Version None)
Quarter: 2009Q2

REPORT INFORMATION
  Report Type: 
  Country: None (occurrence: None)
  Receive Date: 20090520
  Receipt Date: 20090415
  Transmission Date: 20091009
  Serious: No
  Sender: FDA-Public Use
  Company Number: US-ABBOTT-09P-163-0568367-00

PATIENT
  Sex: Female
  Weight: 86.26 kg

DRUGS (12)
  1. ZEMPLAR [Suspect]
     Indication: HYPERPARATHYROIDISM
     Route: 042
     Dates: start: 20090408, end: 20090413
  2. HUMALOG [Concomitant]
     Indication: DIABETES MELLITUS
  3. REGULAR INSULIN [Concomitant]
     Indication: DIABETES MELLITUS
     Dosage: PER SLIDING SCALE
  4. LACTULOSE [Concomitant]
     Indication: DRUG USE FOR UNKNOWN INDICATION
  5. LANTUS [Concomitant]
     Indication: DIABETES MELLITUS
  6. RENAGEL [Concomitant]
     Indication: BLOOD PHOSPHORUS INCREASED
  7. OXYCODONE HCL [Concomitant]
     Indication: PAIN
     Dosage: PRN
  8. NEPHRO CAPS [Concomitant]
     Indication: RENAL FAILURE
  9. RIFAXIMIN [Concomitant]
     Indication: DRUG USE FOR UNKNOWN INDICATION
  10. LYRICA [Concomitant]
     Indication: DRUG USE FOR UNKNOWN INDICATION
  11. ACIPHEX [Concomitant]
     Indication: DRUG USE FOR UNKNOWN INDICATION
  12. EPOGEN [Concomitant]
     Indication: ANAEMIA
     Route: 042

REACTIONS (1)
  - RASH GENERALISED [None]
